FAERS Safety Report 7932698 (Version 2)
Quarter: 2012Q4

REPORT INFORMATION
  Report Type: 
  Country: US (occurrence: US)
  Receive Date: 20110506
  Receipt Date: 20120928
  Transmission Date: 20130627
  Serious: Yes (Other)
  Sender: FDA-Public Use
  Company Number: US-US-EMD SERONO, INC.-7056257

PATIENT
  Age: 54 Year
  Sex: Female
  Weight: 61 kg

DRUGS (11)
  1. REBIF [Suspect]
     Indication: RELAPSING-REMITTING MULTIPLE SCLEROSIS
     Route: 058
     Dates: start: 20060726, end: 20110720
  2. REBIF [Suspect]
     Route: 058
     Dates: start: 20110720, end: 20110920
  3. REBIF [Suspect]
     Route: 058
     Dates: start: 20110920
  4. TRILEPTAL [Suspect]
     Indication: PAIN
     Dates: start: 20101103
  5. TRILEPTAL [Suspect]
  6. ZONEGRAN [Suspect]
     Indication: PAIN
     Route: 048
     Dates: start: 20110414, end: 20110428
  7. TEMAZEPAM [Concomitant]
     Indication: INSOMNIA
     Dates: end: 20120322
  8. VICODIN [Concomitant]
     Indication: PAIN
  9. IBUPROFEN [Concomitant]
     Indication: PAIN
     Dates: start: 20090526, end: 20120821
  10. CALCIUM CITRATE [Concomitant]
     Indication: PRODUCT USED FOR UNKNOWN INDICATION
     Dates: start: 20090304
  11. CALCIUM PLUS D [Concomitant]
     Indication: PRODUCT USED FOR UNKNOWN INDICATION

REACTIONS (6)
  - Suicidal ideation [Not Recovered/Not Resolved]
  - Depression [Recovering/Resolving]
  - Blood sodium decreased [Not Recovered/Not Resolved]
  - Feeling abnormal [Unknown]
  - White blood cell count decreased [Not Recovered/Not Resolved]
  - Hepatic enzyme increased [Recovering/Resolving]
